FAERS Safety Report 13763054 (Version 1)
Quarter: 2017Q3

REPORT INFORMATION
  Report Type: Spontaneous
  Country: ES (occurrence: ES)
  Receive Date: 20170718
  Receipt Date: 20170718
  Transmission Date: 20171127
  Serious: Yes (Life-Threatening, Other)
  Sender: FDA-Public Use
  Company Number: ES-PFIZER INC-2017309088

PATIENT

DRUGS (9)
  1. DOPAMINE [Suspect]
     Active Substance: DOPAMINE\DOPAMINE HYDROCHLORIDE
     Dosage: 10 UG/KG, /MIN
  2. LEVOFLOXACIN. [Concomitant]
     Active Substance: LEVOFLOXACIN
     Indication: STENOTROPHOMONAS INFECTION
     Dosage: 8.5 MG/KG, EVERY 12 H
  3. MEROPENEM. [Concomitant]
     Active Substance: MEROPENEM
     Indication: KLEBSIELLA INFECTION
     Dosage: UNK
  4. DOBUTAMINE HCL [Suspect]
     Active Substance: DOBUTAMINE HYDROCHLORIDE
     Dosage: 20 UG/KG, PER MIN
  5. HYDROCORTISONE. [Suspect]
     Active Substance: HYDROCORTISONE
     Dosage: 30 MG/M2, DAILY
  6. EPINEPHRINE. [Suspect]
     Active Substance: EPINEPHRINE
     Dosage: 1 UG/KG, PER MIN
  7. NOREPINEPHRINE. [Suspect]
     Active Substance: NOREPINEPHRINE
     Dosage: 1 UG/KG, PER MIN
  8. DOPAMINE [Suspect]
     Active Substance: DOPAMINE\DOPAMINE HYDROCHLORIDE
     Indication: SEPTIC SHOCK
     Dosage: 20 UG/KG, /MIN
  9. COTRIMOXAZOLE [Concomitant]
     Active Substance: SULFAMETHOXAZOLE\TRIMETHOPRIM
     Indication: STENOTROPHOMONAS INFECTION
     Dosage: 5 MG/KG/DAY OF TRIMETROPRIM

REACTIONS (6)
  - Generalised oedema [Recovered/Resolved]
  - Drug ineffective [Unknown]
  - Anuria [Recovered/Resolved]
  - Metabolic acidosis [Recovered/Resolved]
  - Hyperlactacidaemia [Recovered/Resolved]
  - Tachycardia [Recovered/Resolved]
